FAERS Safety Report 8336599-2 (Version None)
Quarter: 2012Q2

REPORT INFORMATION
  Report Type: 
  Country: None (occurrence: None)
  Receive Date: 20120501
  Receipt Date: 20120419
  Transmission Date: 20120825
  Serious: Yes (Disabling, Other)
  Sender: FDA-Public Use
  Company Number: TPA2012A01676

PATIENT
  Age: 58 Year
  Sex: Female
  Weight: 71.2147 kg

DRUGS (5)
  1. OXYCONTIN [Concomitant]
  2. PERCOCET [Concomitant]
  3. DEXILANT [Suspect]
     Indication: GASTROOESOPHAGEAL REFLUX DISEASE
     Dosage: 60 MG, 2 IN 1 D, PER ORAL
     Route: 048
     Dates: start: 20120301, end: 20120318
  4. HYDROCORTONE [Concomitant]
  5. NEXIUM [Suspect]
     Indication: GASTRIC DISORDER
     Dosage: PER ORAL
     Route: 048
     Dates: end: 20120303

REACTIONS (7)
  - OVERDOSE [None]
  - JOINT SWELLING [None]
  - CONTUSION [None]
  - MYALGIA [None]
  - NO THERAPEUTIC RESPONSE [None]
  - BRONCHITIS [None]
  - ARTHRALGIA [None]
